FAERS Safety Report 17256615 (Version 1)
Quarter: 2019Q4

REPORT INFORMATION
  Report Type: Spontaneous
  Country: US (occurrence: US)
  Receive Date: 20191217
  Receipt Date: 20191217
  Transmission Date: 20200122
  Serious: No
  Sender: FDA-Public Use
  Company Number: None

PATIENT
  Age: 75 Year
  Sex: Female

DRUGS (1)
  1. PROLIA [Suspect]
     Active Substance: DENOSUMAB
     Indication: OSTEOPOROSIS
     Dosage: ?          OTHER FREQUENCY:EVERY 180 DAYS ;?
     Route: 058
     Dates: start: 201901, end: 201906

REACTIONS (4)
  - Gait disturbance [None]
  - Therapy cessation [None]
  - Impaired work ability [None]
  - Myalgia [None]

NARRATIVE: CASE EVENT DATE: 201906
